FAERS Safety Report 24986096 (Version 2)
Quarter: 2025Q1

REPORT INFORMATION
  Report Type: Report from Study
  Country: AR (occurrence: AR)
  Receive Date: 20250219
  Receipt Date: 20250224
  Transmission Date: 20250409
  Serious: Yes (Hospitalization, Other)
  Sender: AKCEA THERAPEUTICS
  Company Number: AR-AKCEA THERAPEUTICS, INC.-2025IS000468

PATIENT

DRUGS (3)
  1. TEGSEDI [Suspect]
     Active Substance: INOTERSEN SODIUM
     Indication: Hereditary neuropathic amyloidosis
     Dosage: 284 MILLIGRAM, QW
     Route: 058
     Dates: start: 20220704, end: 20240502
  2. PREGABALIN [Concomitant]
     Active Substance: PREGABALIN
     Indication: Product used for unknown indication
     Route: 065
  3. LOPERAMIDA [LOPERAMIDE] [Concomitant]
     Indication: Product used for unknown indication
     Route: 065

REACTIONS (2)
  - Hernial eventration [Not Recovered/Not Resolved]
  - Disease progression [Not Recovered/Not Resolved]
